FAERS Safety Report 7224494-1 (Version None)
Quarter: 2011Q1

REPORT INFORMATION
  Report Type: 
  Country: None (occurrence: None)
  Receive Date: 20110113
  Receipt Date: 20110106
  Transmission Date: 20110831
  Serious: No
  Sender: FDA-Public Use
  Company Number: US-PFIZER INC-2011006030

PATIENT
  Age: 90 Year
  Sex: Female
  Weight: 52.154 kg

DRUGS (2)
  1. ADVIL PM [Suspect]
     Indication: INSOMNIA
  2. ADVIL PM [Suspect]
     Indication: PAIN
     Dosage: 2 CAPLETS
     Route: 048
     Dates: end: 20110105

REACTIONS (2)
  - DRUG INEFFECTIVE [None]
  - TREMOR [None]
